FAERS Safety Report 9336771 (Version 2)
Quarter: 2013Q3

REPORT INFORMATION
  Report Type: Spontaneous
  Country: AT (occurrence: AT)
  Receive Date: 20130607
  Receipt Date: 20130715
  Transmission Date: 20140515
  Serious: Yes (Other)
  Sender: FDA-Public Use
  Company Number: PHHY2013AT057516

PATIENT
  Age: 63 Year
  Sex: Female

DRUGS (5)
  1. EXFORGE HCT [Suspect]
     Indication: HYPERTENSION
     Dosage: 1 DF (160 MG VALS, 5 MG AMLO AND 12.5 MG HCTZ), QD IN THE MORNING
     Route: 048
     Dates: start: 20130524, end: 20130605
  2. CALCIDURAN [Concomitant]
     Dosage: 1 DF, QD IN THE MORNING
     Route: 048
  3. AMLODIPIN [Concomitant]
     Dosage: 0.5 DF (10 MG), QD AT NIGHT
     Route: 048
  4. DAFLON                             /01026201/ [Concomitant]
     Dosage: 1 DF,  ONE IN MORNING AND ONE AT NIGHT
     Route: 048
  5. PRAM//CITALOPRAM HYDROBROMIDE [Concomitant]
     Dosage: 0.5 DF, ONE IN MORNING AND ONE IN EVENING
     Route: 048

REACTIONS (3)
  - Skin haemorrhage [Unknown]
  - Scratch [Unknown]
  - Rash [Recovered/Resolved]
